FAERS Safety Report 6400963-9 (Version None)
Quarter: 2009Q4

REPORT INFORMATION
  Report Type: 
  Country: None (occurrence: None)
  Receive Date: 20091015
  Receipt Date: 20070309
  Transmission Date: 20100525
  Serious: Yes (Disabling)
  Sender: FDA-Public Use
  Company Number: US-ASTRAZENECA-2006UW10857

PATIENT
  Sex: Female
  Weight: 117.9 kg

DRUGS (11)
  1. SEROQUEL [Suspect]
     Route: 048
     Dates: start: 20020326
  2. CELEXA [Concomitant]
     Dates: start: 20020326
  3. BEXTRA [Concomitant]
     Indication: DEPRESSION
     Dates: start: 20050503
  4. LORTAB [Concomitant]
     Dosage: STRENGTH: 5 MG ONE TO TWO EVERY SIX HOURS
     Route: 048
     Dates: start: 20050503
  5. TRAZODONE [Concomitant]
     Dates: start: 20040422
  6. ZOLOFT [Concomitant]
     Dates: start: 20040422
  7. VIOXX [Concomitant]
     Dates: start: 20040422
  8. NEXIUM [Concomitant]
     Dates: start: 20040422
  9. CELEBREX [Concomitant]
     Dates: start: 20060405
  10. CRESTOR [Concomitant]
     Dates: start: 20060405
  11. LANTUS [Concomitant]
     Dates: start: 20060405

REACTIONS (1)
  - ILL-DEFINED DISORDER [None]
